FAERS Safety Report 19377361 (Version 1)
Quarter: 2021Q2

REPORT INFORMATION
  Report Type: Spontaneous
  Country: GB (occurrence: GB)
  Receive Date: 20210604
  Receipt Date: 20210604
  Transmission Date: 20210717
  Serious: Yes (Other)
  Sender: FDA-Public Use
  Company Number: GB-ELI_LILLY_AND_COMPANY-GB202105011912

PATIENT
  Age: 74 Year
  Sex: Male

DRUGS (1)
  1. HUMULIN R [Suspect]
     Active Substance: INSULIN HUMAN
     Indication: PRODUCT USED FOR UNKNOWN INDICATION
     Dosage: UNK UNK, UNKNOWN
     Route: 065
     Dates: start: 2007

REACTIONS (5)
  - Diplopia [Unknown]
  - Retinal detachment [Unknown]
  - Uveitis [Unknown]
  - Blindness [Unknown]
  - Glaucoma [Unknown]

NARRATIVE: CASE EVENT DATE: 2018
